FAERS Safety Report 18411184 (Version 1)
Quarter: 2020Q4

REPORT INFORMATION
  Report Type: Spontaneous
  Country: US (occurrence: US)
  Receive Date: 20201021
  Receipt Date: 20201021
  Transmission Date: 20210114
  Serious: No
  Sender: FDA-Public Use
  Company Number: US-GLENMARK PHARMACEUTICALS-2020GMK049536

PATIENT

DRUGS (4)
  1. RANOLAZINE EXTENDED-RELEASE TABLETS, 500 MG [Suspect]
     Active Substance: RANOLAZINE
     Indication: CHEST PAIN
     Dosage: 500 MILLIGRAM, QID  (TWO TABLETS IN THE MORNING AND TWO TABLETS AT NIGHT)
     Route: 048
     Dates: start: 2018
  2. FINASTERIDE. [Concomitant]
     Active Substance: FINASTERIDE
     Indication: ILL-DEFINED DISORDER
     Dosage: UNK
     Route: 065
  3. RANOLAZINE EXTENDED-RELEASE TABLETS, 500 MG [Suspect]
     Active Substance: RANOLAZINE
     Dosage: 500 MILLIGRAM, BID (ONE TABLET IN THE MORNING AND ONE TABLET AT THE NIGHT)
     Route: 048
  4. LOSARTAN. [Concomitant]
     Active Substance: LOSARTAN
     Indication: BLOOD PRESSURE ABNORMAL
     Dosage: UNK
     Route: 065

REACTIONS (1)
  - Constipation [Recovering/Resolving]
